FAERS Safety Report 5693746-9 (Version None)
Quarter: 2008Q2

REPORT INFORMATION
  Report Type: 
  Country: None (occurrence: None)
  Receive Date: 20080403
  Receipt Date: 20080324
  Transmission Date: 20081010
  Serious: Yes (Hospitalization, Other)
  Sender: FDA-Public Use
  Company Number: CH-ABBOTT-08P-151-0438724-00

PATIENT
  Age: 84 Year
  Sex: Female

DRUGS (4)
  1. CYCLOSPORINE [Suspect]
     Indication: DRUG USE FOR UNKNOWN INDICATION
     Dosage: 100 MG/D
  2. CYCLOSPORINE [Suspect]
     Dosage: 1.25 MG/KG PER DAY
  3. ESCITALOPRAM OXALATE [Suspect]
     Indication: DRUG USE FOR UNKNOWN INDICATION
     Dosage: INITIAL DOSE 2.5 MG/D, GRADUALLY INCREASED TO 15 MG/D
  4. AZATHIOPRINE [Concomitant]
     Indication: IMMUNOSUPPRESSION
     Dosage: 1.5 MG/KG PER DAY

REACTIONS (1)
  - SEROTONIN SYNDROME [None]
